FAERS Safety Report 10449112 (Version 3)
Quarter: 2014Q3

REPORT INFORMATION
  Report Type: Report from Study
  Country: DE (occurrence: DE)
  Receive Date: 20140912
  Receipt Date: 20140919
  Transmission Date: 20150326
  Serious: Yes (Hospitalization)
  Sender: FDA-Public Use
  Company Number: DE-AMGEN-DEUCT2014066842

PATIENT
  Age: 58 Year
  Sex: Male
  Weight: 107.8 kg

DRUGS (15)
  1. CINACALCET HCL [Suspect]
     Active Substance: CINACALCET HYDROCHLORIDE
     Indication: HYPERPARATHYROIDISM SECONDARY
     Dosage: UNK
     Route: 065
  2. UREA. [Concomitant]
     Active Substance: UREA
     Dosage: 3 G, UNK
     Route: 061
     Dates: start: 20130513
  3. BERODUAL [Concomitant]
     Active Substance: FENOTEROL HYDROBROMIDE\IPRATROPIUM BROMIDE
     Dosage: 1 UNK, UNK
     Route: 055
     Dates: start: 20130212
  4. CALCITRIOL. [Concomitant]
     Active Substance: CALCITRIOL
     Dosage: 0.25 MUG, UNK
     Route: 048
     Dates: start: 20131211
  5. RENAGEL [Concomitant]
     Active Substance: SEVELAMER HYDROCHLORIDE
     Dosage: 800 MG, UNK
     Route: 048
     Dates: start: 20130426
  6. METOPROLOL [Concomitant]
     Active Substance: METOPROLOL
     Dosage: 50 MG, UNK
     Route: 048
     Dates: start: 20130115
  7. AMIODARONE [Concomitant]
     Active Substance: AMIODARONE
     Dosage: 200 MG, UNK
     Route: 048
     Dates: start: 20130212
  8. FERROUS SUCCINATE [Concomitant]
     Active Substance: FERROUS SUCCINATE
     Dosage: 62.5 MG, UNK
     Route: 042
     Dates: start: 20130308
  9. TORASEMIDE [Concomitant]
     Active Substance: TORSEMIDE
     Dosage: 100 MG, UNK
     Route: 048
     Dates: start: 20130212
  10. COUMARIN [Concomitant]
     Active Substance: COUMARIN
     Dosage: 2 MG, UNK
     Route: 048
     Dates: start: 20140509
  11. DIGITOXIN [Concomitant]
     Active Substance: DIGITOXIN
     Dosage: 0.1 MG, UNK
     Route: 048
     Dates: start: 20130115
  12. PANTOPRAZOLE [Concomitant]
     Active Substance: PANTOPRAZOLE SODIUM
     Dosage: 40 MG, UNK
     Route: 048
     Dates: start: 20130115
  13. ENOXAPARIN [Concomitant]
     Active Substance: ENOXAPARIN
     Dosage: 40-60 MG, UNK
     Route: 058
     Dates: start: 20140117, end: 20140518
  14. CALCIUM ACETATE. [Concomitant]
     Active Substance: CALCIUM ACETATE
     Dosage: 475 MG, UNK
     Route: 048
     Dates: start: 20130219
  15. CHOLECALCIFEROL [Concomitant]
     Active Substance: CHOLECALCIFEROL
     Dosage: 20000 IU, UNK
     Route: 048
     Dates: start: 20130212

REACTIONS (1)
  - Venous stenosis [Recovered/Resolved]

NARRATIVE: CASE EVENT DATE: 20140317
